FAERS Safety Report 14062185 (Version 2)
Quarter: 2017Q4

REPORT INFORMATION
  Report Type: Spontaneous
  Country: US (occurrence: US)
  Receive Date: 20171009
  Receipt Date: 20171102
  Transmission Date: 20180321
  Serious: No
  Sender: FDA-Public Use
  Company Number: US-PFIZER INC-2017428438

PATIENT
  Age: 51 Year
  Sex: Female

DRUGS (2)
  1. METHOTREXATE. [Suspect]
     Active Substance: METHOTREXATE
     Indication: RHEUMATOID ARTHRITIS
     Dosage: UNK
     Route: 048
     Dates: start: 2000, end: 2001
  2. METHOTREXATE SODIUM. [Suspect]
     Active Substance: METHOTREXATE SODIUM
     Indication: RHEUMATOID ARTHRITIS
     Dosage: UNK
     Route: 058
     Dates: start: 2000, end: 2001

REACTIONS (9)
  - Drug ineffective [Unknown]
  - Incorrect route of drug administration [Unknown]
  - Dizziness [Unknown]
  - Night sweats [Unknown]
  - Nausea [Unknown]
  - Malaise [Unknown]
  - Abdominal discomfort [Unknown]
  - Pain [Unknown]
  - Headache [Unknown]
